FAERS Safety Report 7688952-8 (Version None)
Quarter: 2011Q3

REPORT INFORMATION
  Report Type: 
  Country: None (occurrence: None)
  Receive Date: 20110817
  Receipt Date: 20110809
  Transmission Date: 20111222
  Serious: Yes (Other)
  Sender: FDA-Public Use
  Company Number: PHHY2011DE58444

PATIENT
  Sex: Male

DRUGS (2)
  1. EXTAVIA [Suspect]
     Dosage: 250 UG, QOD
     Route: 058
     Dates: start: 20110627
  2. EXTAVIA [Suspect]
     Indication: MULTIPLE SCLEROSIS
     Dosage: 62.5 UG, QOD
     Route: 058
     Dates: start: 20110627

REACTIONS (7)
  - SLEEP DISORDER [None]
  - PARESIS [None]
  - DIZZINESS [None]
  - INJECTION SITE ERYTHEMA [None]
  - PARAESTHESIA [None]
  - PAIN IN EXTREMITY [None]
  - SPEECH DISORDER [None]
